FAERS Safety Report 9352110 (Version 2)
Quarter: 2013Q4

REPORT INFORMATION
  Report Type: Spontaneous
  Country: GB (occurrence: None)
  Receive Date: 20130612
  Receipt Date: 20131022
  Transmission Date: 20140711
  Serious: Yes (Disabling, Congenital Anomaly, Other)
  Sender: FDA-Public Use
  Company Number: AUR-APL-2013-04641

PATIENT
  Sex: 0

DRUGS (1)
  1. CITALOPRAM [Suspect]
     Indication: DEPRESSION
     Route: 064
     Dates: start: 20090810

REACTIONS (4)
  - Maternal drugs affecting foetus [None]
  - Ventricular hypoplasia [None]
  - Aorta hypoplasia [None]
  - Atrioventricular septal defect [None]
